FAERS Safety Report 10237776 (Version 1)
Quarter: 2014Q2

REPORT INFORMATION
  Report Type: Spontaneous
  Country: US (occurrence: None)
  Receive Date: 20140612
  Receipt Date: 20140612
  Transmission Date: 20141212
  Serious: Yes (Hospitalization)
  Sender: FDA-Public Use
  Company Number: None

PATIENT
  Age: 22 Year
  Sex: Female
  Weight: 46.2 kg

DRUGS (7)
  1. CYTARABINE [Suspect]
  2. L-ASPARAGINASE [Suspect]
  3. CYCLOPHOSPHAMIDE [Suspect]
  4. ETOPOSIDE [Suspect]
  5. LEUCOVONIN CALCIUM [Suspect]
  6. MERCAPTOPURINE [Suspect]
  7. METHOTREXATE [Suspect]

REACTIONS (10)
  - Proctalgia [None]
  - Rectal discharge [None]
  - Skin odour abnormal [None]
  - Anal abscess [None]
  - Pyrexia [None]
  - Hypotension [None]
  - Escherichia infection [None]
  - Wound infection [None]
  - Bacillus infection [None]
  - Constipation [None]
